FAERS Safety Report 22337962 (Version 1)
Quarter: 2023Q2

REPORT INFORMATION
  Report Type: Spontaneous
  Country: US (occurrence: None)
  Receive Date: 20230518
  Receipt Date: 20230518
  Transmission Date: 20230722
  Serious: No
  Sender: FDA-Public Use
  Company Number: 2023A114459

PATIENT
  Age: 848 Month

DRUGS (1)
  1. FARXIGA [Suspect]
     Active Substance: DAPAGLIFLOZIN PROPANEDIOL
     Route: 048

REACTIONS (8)
  - Dehydration [Unknown]
  - Urinary tract infection [Unknown]
  - Chromaturia [Unknown]
  - Renal impairment [Unknown]
  - Blood test abnormal [Unknown]
  - Urethral disorder [Unknown]
  - Dysuria [Unknown]
  - Memory impairment [Unknown]

NARRATIVE: CASE EVENT DATE: 20230301
